FAERS Safety Report 8510913-7 (Version None)
Quarter: 2012Q3

REPORT INFORMATION
  Report Type: 
  Country: None (occurrence: None)
  Receive Date: 20120716
  Receipt Date: 20120711
  Transmission Date: 20120928
  Serious: Yes (Death)
  Sender: FDA-Public Use
  Company Number: CA-CELGENEUS-028-21880-12071267

PATIENT
  Sex: Female

DRUGS (14)
  1. DECADRON [Concomitant]
     Route: 065
  2. CALCIUM [Concomitant]
     Route: 065
  3. PANTOPRAZOLE SODIUM [Concomitant]
     Route: 065
  4. REVLIMID [Suspect]
     Indication: MULTIPLE MYELOMA
     Dosage: 5 MILLIGRAM
     Route: 048
     Dates: start: 20120606
  5. AREDIA [Concomitant]
     Route: 065
  6. VITAMIN B-12 [Concomitant]
     Route: 065
  7. EPREX [Concomitant]
     Route: 065
  8. VENOFEN [Concomitant]
     Route: 065
  9. FAMVIR [Concomitant]
     Route: 065
  10. EURO-D [Concomitant]
     Route: 065
  11. COLACE [Concomitant]
     Route: 065
  12. NORVASC [Concomitant]
     Route: 065
  13. LOVENOX [Concomitant]
     Route: 065
  14. CRESTOR [Concomitant]
     Route: 065

REACTIONS (1)
  - DEATH [None]
